FAERS Safety Report 5008454-7 (Version None)
Quarter: 2006Q2

REPORT INFORMATION
  Report Type: 
  Country: None (occurrence: None)
  Receive Date: 20060522
  Receipt Date: 20060522
  Transmission Date: 20061013
  Serious: Yes (Hospitalization)
  Sender: FDA-Public Use
  Company Number: None

PATIENT
  Sex: Male
  Weight: 113.3993 kg

DRUGS (12)
  1. BEVACIZUMAB, 5MG/KG, GENENTECH [Suspect]
     Indication: PANCREATIC NEOPLASM
     Dosage: 570 MG QS Q2 WKS
     Route: 042
     Dates: start: 20060411, end: 20060425
  2. DEXAMETHASONE TAB [Suspect]
     Indication: PANCREATIC NEOPLASM
     Dosage: 20 MG IV
     Route: 042
     Dates: start: 20060411, end: 20060425
  3. LORAZEPAM [Suspect]
     Indication: PANCREATIC NEOPLASM
     Dosage: 1 MG, Q2 WKS PO
     Route: 048
     Dates: start: 20060411, end: 20060425
  4. GRANISETRON HCL [Suspect]
     Indication: PANCREATIC NEOPLASM
     Dosage: 1200 MCG, Q2 WKS , IV
     Route: 042
     Dates: start: 20060411, end: 20060425
  5. OXALIPLATIN 9.5 MG/M2,SANOFI-SYNTHELABS [Suspect]
     Indication: PANCREATIC NEOPLASM
     Dosage: 200 MG , Q 2 WKS, IV
     Route: 042
     Dates: start: 20060411, end: 20060425
  6. LEUCOVORIN CALCIUM [Suspect]
     Indication: PANCREATIC NEOPLASM
     Dosage: 475 MG , Q2 WKS IV
     Route: 042
     Dates: start: 20060401, end: 20060425
  7. FLUOROURACIL, 400 MG/M2 AND 1200 MG/M2 [Suspect]
     Indication: PANCREATIC NEOPLASM
     Dosage: 950-2850 MG Q2 WKS IV
     Route: 042
     Dates: start: 20060411, end: 20060425
  8. PROTONIX [Concomitant]
  9. SANDOSTATIN LAR [Concomitant]
  10. . [Concomitant]
  11. ASPIRIN [Concomitant]
  12. D10 [Concomitant]

REACTIONS (12)
  - ABDOMINAL PAIN UPPER [None]
  - CHILLS [None]
  - DEHYDRATION [None]
  - DIARRHOEA [None]
  - FATIGUE [None]
  - FLATULENCE [None]
  - HYPOAESTHESIA [None]
  - HYPOTENSION [None]
  - PAIN [None]
  - PARAESTHESIA [None]
  - STOMATITIS [None]
  - VOMITING [None]
